FAERS Safety Report 23917297 (Version 1)
Quarter: 2024Q2

REPORT INFORMATION
  Report Type: Spontaneous
  Country: JP (occurrence: JP)
  Receive Date: 20240529
  Receipt Date: 20240529
  Transmission Date: 20240715
  Serious: Yes (Hospitalization)
  Sender: FDA-Public Use
  Company Number: JP-Eisai-202208289_LEN-EC_P_1

PATIENT
  Age: 62 Year
  Sex: Female

DRUGS (17)
  1. LENVATINIB [Suspect]
     Active Substance: LENVATINIB
     Indication: Endometrial cancer
     Route: 048
     Dates: start: 20220913, end: 2022
  2. LENVATINIB [Suspect]
     Active Substance: LENVATINIB
     Route: 048
  3. LENVATINIB [Suspect]
     Active Substance: LENVATINIB
     Route: 048
  4. LENVATINIB [Suspect]
     Active Substance: LENVATINIB
     Route: 048
  5. KEYTRUDA [Suspect]
     Active Substance: PEMBROLIZUMAB
     Indication: Endometrial cancer
     Route: 041
     Dates: start: 20220913
  6. KEYTRUDA [Suspect]
     Active Substance: PEMBROLIZUMAB
     Dosage: DOSE AND FREQUENCY UNKNOWN
     Route: 041
  7. UREA [Concomitant]
     Active Substance: UREA
     Indication: Prophylaxis
     Dosage: DOSE UNKNOWN
     Route: 061
     Dates: start: 20220913
  8. HEPARINOID [Concomitant]
     Indication: Prophylaxis
     Dosage: DOSE UNKNOWN
     Route: 061
     Dates: start: 20220913
  9. AMLODIPINE [Concomitant]
     Active Substance: AMLODIPINE BESYLATE
     Indication: Hypertension
     Route: 065
     Dates: start: 20220913
  10. AZILSARTAN KAMEDOXOMIL [Concomitant]
     Active Substance: AZILSARTAN KAMEDOXOMIL
     Indication: Hypertension
     Route: 065
     Dates: start: 20220913
  11. AZILSARTAN KAMEDOXOMIL [Concomitant]
     Active Substance: AZILSARTAN KAMEDOXOMIL
     Route: 065
  12. AZILSARTAN KAMEDOXOMIL [Concomitant]
     Active Substance: AZILSARTAN KAMEDOXOMIL
     Route: 065
  13. DOMPERIDONE [Concomitant]
     Active Substance: DOMPERIDONE
     Indication: Nausea
     Dosage: DOSE UNKNOWN
     Route: 065
  14. BETAMETHASONE DIPROPIONATE [Concomitant]
     Active Substance: BETAMETHASONE DIPROPIONATE
     Indication: Palmar-plantar erythrodysaesthesia syndrome
     Dosage: DOSE UNKNOWN
     Route: 061
  15. AZUNOL [Concomitant]
     Indication: Stomatitis
     Route: 061
  16. DEXAMETHASONE [Concomitant]
     Active Substance: DEXAMETHASONE
     Indication: Stomatitis
     Dosage: DOSE UNKNOWN
     Route: 061
  17. HERBALS [Concomitant]
     Active Substance: HERBALS
     Indication: Stomatitis
     Dosage: DOSE UNKNOWN
     Route: 065

REACTIONS (14)
  - Immune-mediated enterocolitis [Recovering/Resolving]
  - Platelet count decreased [Unknown]
  - Palmar-plantar erythrodysaesthesia syndrome [Recovering/Resolving]
  - Hypertension [Recovering/Resolving]
  - Diarrhoea [Not Recovered/Not Resolved]
  - Stomatitis [Recovering/Resolving]
  - Glossitis [Recovering/Resolving]
  - Nausea [Unknown]
  - Hypoaesthesia [Unknown]
  - Malaise [Unknown]
  - Anal fissure [Unknown]
  - Decreased appetite [Unknown]
  - Colitis [Recovering/Resolving]
  - Hypophagia [Unknown]

NARRATIVE: CASE EVENT DATE: 20220101
